FAERS Safety Report 15326872 (Version 2)
Quarter: 2018Q4

REPORT INFORMATION
  Report Type: Report from Study
  Country: CO (occurrence: CO)
  Receive Date: 20180828
  Receipt Date: 20181217
  Transmission Date: 20190204
  Serious: Yes (Other)
  Sender: FDA-Public Use
  Company Number: CO-ASTELLAS-2018US037970

PATIENT
  Age: 59 Year
  Sex: Female

DRUGS (2)
  1. TACROLIMUS. [Suspect]
     Active Substance: TACROLIMUS
     Indication: RENAL TRANSPLANT
     Dosage: 6 MG, ONCE DAILY (1 CAPSULE OF 5MG AND 1 CAPSULE OF 1 MG)
     Route: 048
     Dates: start: 2016
  2. TACROLIMUS. [Suspect]
     Active Substance: TACROLIMUS
     Indication: RENAL TRANSPLANT
     Dosage: 6 MG, ONCE DAILY (1 CAPSULE OF 5MG AND 1 CAPSULE OF 1 MG)
     Route: 048
     Dates: start: 2016

REACTIONS (1)
  - Renal artery occlusion [Not Recovered/Not Resolved]

NARRATIVE: CASE EVENT DATE: 201806
